FAERS Safety Report 5281904-7 (Version None)
Quarter: 2007Q2

REPORT INFORMATION
  Report Type: 
  Country: None (occurrence: None)
  Receive Date: 20070330
  Receipt Date: 20070326
  Transmission Date: 20071010
  Serious: Yes (Other)
  Sender: FDA-Public Use
  Company Number: CH-JNJFOC-20070305256

PATIENT
  Sex: Male

DRUGS (6)
  1. REMINYL [Suspect]
     Route: 048
  2. REMINYL [Suspect]
     Indication: DEMENTIA
     Route: 048
  3. ZOLOFT [Concomitant]
     Indication: DEPRESSION
  4. COAPROVEL [Concomitant]
     Indication: HYPERTONIA
  5. RISPERDAL [Concomitant]
  6. PRADIL T [Concomitant]
     Indication: BENIGN PROSTATIC HYPERPLASIA

REACTIONS (3)
  - DIZZINESS [None]
  - HYPOTONIA [None]
  - VERTIGO [None]
